FAERS Safety Report 15986523 (Version 1)
Quarter: 2019Q1

REPORT INFORMATION
  Report Type: Spontaneous
  Country: SA (occurrence: SA)
  Receive Date: 20190220
  Receipt Date: 20190220
  Transmission Date: 20190418
  Serious: Yes (Life-Threatening, Hospitalization)
  Sender: FDA-Public Use
  Company Number: None

PATIENT
  Age: 3 Year
  Sex: Female

DRUGS (1)
  1. CYCLOSPORINE. [Suspect]
     Active Substance: CYCLOSPORINE

REACTIONS (9)
  - Tachycardia [None]
  - Seizure [None]
  - Chest pain [None]
  - Vomiting [None]
  - Musculoskeletal stiffness [None]
  - Abdominal pain [None]
  - Agitation [None]
  - Hypotension [None]
  - Unresponsive to stimuli [None]
